FAERS Safety Report 8447355-9 (Version None)
Quarter: 2012Q2

REPORT INFORMATION
  Report Type: 
  Country: None (occurrence: None)
  Receive Date: 20120619
  Receipt Date: 20120615
  Transmission Date: 20120825
  Serious: Yes (Death)
  Sender: FDA-Public Use
  Company Number: PHFR2012GB003532

PATIENT

DRUGS (1)
  1. CLOZARIL [Suspect]
     Route: 048

REACTIONS (1)
  - DEATH [None]
